FAERS Safety Report 10537193 (Version 3)
Quarter: 2014Q4

REPORT INFORMATION
  Report Type: Spontaneous
  Country: JP (occurrence: JP)
  Receive Date: 20141022
  Receipt Date: 20141031
  Transmission Date: 20150529
  Serious: Yes (Hospitalization, Other)
  Sender: FDA-Public Use
  Company Number: JP-009507513-1410JPN009316

PATIENT
  Age: 1 Day
  Weight: 3.39 kg

DRUGS (8)
  1. SEVOFLURANE. [Concomitant]
     Active Substance: SEVOFLURANE
     Indication: INDUCTION OF ANAESTHESIA
     Dosage: 8 % DAILY, DIVIDED DOSE FREQUENCY UNKNOWN
     Route: 064
  2. NITROUS OXIDE. [Concomitant]
     Active Substance: NITROUS OXIDE
     Indication: MAINTENANCE OF ANAESTHESIA
     Dosage: 50 % DAILY, DIVIDED DOSE FREQUENCY UNKNOWN
     Route: 064
  3. ULTIVA [Concomitant]
     Active Substance: REMIFENTANIL HYDROCHLORIDE
     Indication: MAINTENANCE OF ANAESTHESIA
     Dosage: 0.03-0.05 MCG/KG/MIN, DAILY DOSE UNKNOWN
     Route: 064
  4. OXYGEN. [Concomitant]
     Active Substance: OXYGEN
     Indication: MAINTENANCE OF ANAESTHESIA
     Dosage: 6 L/MIN, DAILY DOSE UNKNOWN
     Route: 064
  5. SEVOFLURANE. [Concomitant]
     Active Substance: SEVOFLURANE
     Dosage: 3 % DAILY, DIVIDED DOSE FREQUENCY UNKNOWN
     Route: 064
  6. ESLAX INTRAVENOUS 25MG/2.5ML [Suspect]
     Active Substance: ROCURONIUM BROMIDE
     Indication: NEUROMUSCULAR BLOCKING THERAPY
     Dosage: 100 MG DAILY, DIVIDED DOSE FREQUENCY UNKNOWN
     Route: 064
  7. PROPOFOL. [Suspect]
     Active Substance: PROPOFOL
     Indication: INDUCTION OF ANAESTHESIA
     Dosage: 300 MG DAILY, DIVIDED DOSE FREQUENCY UNKNOWN
     Route: 064
  8. OXYGEN. [Concomitant]
     Active Substance: OXYGEN
     Dosage: 50 % DAILY, DIVIDED DOSE FREQUENCY UNKNOWN
     Route: 064

REACTIONS (2)
  - Foetal exposure during pregnancy [Unknown]
  - Neonatal asphyxia [Recovered/Resolved]
